FAERS Safety Report 4551961-1 (Version None)
Quarter: 2005Q1

REPORT INFORMATION
  Report Type: 
  Country: None (occurrence: None)
  Receive Date: 20050112
  Receipt Date: 20041227
  Transmission Date: 20050727
  Serious: Yes (Death, Hospitalization)
  Sender: FDA-Public Use
  Company Number: A02200403858

PATIENT
  Age: 73 Year
  Sex: Female

DRUGS (4)
  1. PLAVIX [Suspect]
     Dosage: ORAL
     Route: 048
     Dates: end: 20041111
  2. TANGANIL (ETHANOLAMINE ACETYLLEUCINATE) [Concomitant]
  3. VASTAREL (TRIMETAZIDINE HYDROCHLORIDE) [Concomitant]
  4. PRAVASTATIN SODIUM [Concomitant]

REACTIONS (2)
  - COMA [None]
  - HAEMORRHAGIC STROKE [None]
